FAERS Safety Report 9181984 (Version 1)
Quarter: 2013Q1

REPORT INFORMATION
  Report Type: Spontaneous
  Country: US (occurrence: US)
  Receive Date: 20130322
  Receipt Date: 20130322
  Transmission Date: 20140127
  Serious: Yes (Hospitalization, Other)
  Sender: FDA-Public Use
  Company Number: US-SANOFI-AVENTIS-2013SA028545

PATIENT
  Sex: Male

DRUGS (7)
  1. LANTUS SOLOSTAR [Suspect]
     Indication: TYPE 2 DIABETES MELLITUS
     Dosage: DOSE:28 UNIT(S)
     Route: 058
  2. LANTUS SOLOSTAR [Suspect]
     Indication: TYPE 2 DIABETES MELLITUS
     Dosage: DOSE:30 UNIT(S)
     Route: 058
  3. LANTUS SOLOSTAR [Suspect]
     Indication: TYPE 2 DIABETES MELLITUS
     Dosage: 16 UNITS IN THE AM AND 30 UNITS AT NIGHT
     Route: 058
  4. SOLOSTAR [Suspect]
     Indication: TYPE 2 DIABETES MELLITUS
  5. GLIMEPIRIDE [Suspect]
     Indication: TYPE 2 DIABETES MELLITUS
     Route: 048
  6. JANUVIA [Suspect]
     Route: 065
  7. METFORMIN [Suspect]
     Route: 065

REACTIONS (6)
  - Nephropathy [Unknown]
  - Hypoglycaemia unawareness [Unknown]
  - Diabetic coma [Recovered/Resolved]
  - Cerebrovascular accident [Recovered/Resolved]
  - Hypoglycaemia [Unknown]
  - Glycosylated haemoglobin increased [Unknown]
